FAERS Safety Report 5409291-1 (Version None)
Quarter: 2007Q3

REPORT INFORMATION
  Report Type: 
  Country: None (occurrence: None)
  Receive Date: 20070807
  Receipt Date: 20070807
  Transmission Date: 20080115
  Serious: Yes (Life-Threatening)
  Sender: FDA-Public Use
  Company Number: None

PATIENT
  Age: 45 Year
  Sex: Female
  Weight: 61.2356 kg

DRUGS (3)
  1. SEPTOCAINE [Suspect]
  2. LIDOCAINE [Suspect]
  3. CITANEST [Suspect]

REACTIONS (7)
  - FEELING HOT [None]
  - LOSS OF CONSCIOUSNESS [None]
  - NERVOUSNESS [None]
  - PROCEDURAL PAIN [None]
  - RESPIRATORY ARREST [None]
  - SEDATION [None]
  - SWELLING FACE [None]
